FAERS Safety Report 7057404-0 (Version None)
Quarter: 2010Q4

REPORT INFORMATION
  Report Type: 
  Country: None (occurrence: None)
  Receive Date: 20101022
  Receipt Date: 20101011
  Transmission Date: 20110411
  Serious: Yes (Other)
  Sender: FDA-Public Use
  Company Number: US-AMGEN INC.-QUU445180

PATIENT

DRUGS (3)
  1. ENBREL [Suspect]
     Indication: ANKYLOSING SPONDYLITIS
     Dosage: UNK UNK, UNK
     Dates: start: 20050901, end: 20070101
  2. PREDNISONE [Concomitant]
     Dosage: 10 MG, QD
     Route: 048
  3. PRENATAL VITAMINS [Concomitant]

REACTIONS (3)
  - CAESAREAN SECTION [None]
  - PARALYSIS [None]
  - SPINAL FRACTURE [None]
